FAERS Safety Report 9824442 (Version 3)
Quarter: 2015Q3

REPORT INFORMATION
  Report Type: Spontaneous
  Country: US (occurrence: US)
  Receive Date: 20140116
  Receipt Date: 20150807
  Transmission Date: 20151125
  Serious: Yes (Hospitalization)
  Sender: FDA-Public Use
  Company Number: US-GILEAD-2011-0039579

PATIENT
  Age: 55 Year
  Sex: Female

DRUGS (15)
  1. LETAIRIS [Suspect]
     Active Substance: AMBRISENTAN
     Indication: PULMONARY HYPERTENSION
     Route: 048
     Dates: start: 20110525
  2. POTASSIUM CHLORIDE. [Concomitant]
     Active Substance: POTASSIUM CHLORIDE
  3. TESSALON [Concomitant]
     Active Substance: BENZONATATE
  4. LISINOPRIL. [Concomitant]
     Active Substance: LISINOPRIL
  5. XANAX [Concomitant]
     Active Substance: ALPRAZOLAM
  6. KLONOPIN [Concomitant]
     Active Substance: CLONAZEPAM
  7. PRILOSEC [Concomitant]
     Active Substance: OMEPRAZOLE MAGNESIUM
  8. BURINEX [Concomitant]
     Active Substance: BUMETANIDE
  9. LETAIRIS [Suspect]
     Active Substance: AMBRISENTAN
     Indication: CHRONIC OBSTRUCTIVE PULMONARY DISEASE
     Route: 048
  10. ACETYLSALICYLIC ACID/SALICYLAMIDE/PARACETAMOL/CAFFEINE [Concomitant]
  11. ASPIRIN. [Concomitant]
     Active Substance: ASPIRIN
  12. SPIRIVA [Concomitant]
     Active Substance: TIOTROPIUM BROMIDE MONOHYDRATE
  13. SIMVASTATIN. [Concomitant]
     Active Substance: SIMVASTATIN
  14. ZAROXOLYN [Concomitant]
     Active Substance: METOLAZONE
  15. ALDACTONE [Concomitant]
     Active Substance: SPIRONOLACTONE

REACTIONS (3)
  - Fluid retention [Unknown]
  - Dyspnoea [Unknown]
  - Drug ineffective [Unknown]

NARRATIVE: CASE EVENT DATE: 20110513
